FAERS Safety Report 4597651-0 (Version None)
Quarter: 2005Q1

REPORT INFORMATION
  Report Type: 
  Country: None (occurrence: None)
  Receive Date: 20050303
  Receipt Date: 20050128
  Transmission Date: 20050727
  Serious: Yes (Other)
  Sender: FDA-Public Use
  Company Number: JP-GLAXOSMITHKLINE-B0369467A

PATIENT
  Age: 44 Year
  Sex: Female
  Weight: 45 kg

DRUGS (3)
  1. IMIGRAN [Suspect]
     Indication: MIGRAINE
     Dosage: 50MG PER DAY
     Route: 048
     Dates: start: 20040222, end: 20040227
  2. NORVASC [Concomitant]
     Dosage: 2.5MG PER DAY
     Route: 048
     Dates: start: 20040222, end: 20040227
  3. LOXONIN [Concomitant]
     Indication: HEADACHE
     Dosage: 1TAB PER DAY
     Route: 048
     Dates: start: 20040222, end: 20040227

REACTIONS (3)
  - DIPLOPIA [None]
  - PUPILS UNEQUAL [None]
  - SUBARACHNOID HAEMORRHAGE [None]
